FAERS Safety Report 20921794 (Version 1)
Quarter: 2022Q2

REPORT INFORMATION
  Report Type: Spontaneous
  Country: CN (occurrence: CN)
  Receive Date: 20220606
  Receipt Date: 20220606
  Transmission Date: 20220721
  Serious: Yes (Hospitalization)
  Sender: FDA-Public Use
  Company Number: None

PATIENT
  Age: 56 Year
  Sex: Female
  Weight: 60 kg

DRUGS (8)
  1. CYCLOPHOSPHAMIDE [Suspect]
     Active Substance: CYCLOPHOSPHAMIDE
     Indication: Breast cancer female
     Dosage: 800 MG, QD (DOSAGE FORM: INJECTION)
     Route: 041
     Dates: start: 20220325, end: 20220325
  2. CYCLOPHOSPHAMIDE [Suspect]
     Active Substance: CYCLOPHOSPHAMIDE
     Dosage: QD (DOSE RE-INTRODUCED)
     Route: 041
  3. SODIUM CHLORIDE [Suspect]
     Active Substance: SODIUM CHLORIDE
     Indication: Medication dilution
     Dosage: 500 ML, QD (SODIUM CHLORIDE INJECTION 500 ML + CYCLOPHOSPHAMIDE 800 MG)
     Route: 041
     Dates: start: 20220325, end: 20220325
  4. SODIUM CHLORIDE [Suspect]
     Active Substance: SODIUM CHLORIDE
     Dosage: QD (DOSE RE-INTRODUCED; SODIUM CHLORIDE INJECTION + CYCLOPHOSPHAMIDE)
     Route: 041
  5. SODIUM CHLORIDE [Suspect]
     Active Substance: SODIUM CHLORIDE
     Dosage: 250 ML, QD (PACLITAXEL 400 MG + 0.9% SODIUM CHLORIDE INJECTION 250 ML)
     Route: 041
     Dates: start: 20220325, end: 20220325
  6. SODIUM CHLORIDE [Suspect]
     Active Substance: SODIUM CHLORIDE
     Dosage: QD (DOSE RE-INTRODUCED; PACLITAXEL + SODIUM CHLORIDE)
     Route: 041
  7. PACLITAXEL [Suspect]
     Active Substance: PACLITAXEL
     Indication: Breast cancer female
     Dosage: 400 MG, QD
     Route: 041
     Dates: start: 20220325, end: 20220325
  8. PACLITAXEL [Suspect]
     Active Substance: PACLITAXEL
     Dosage: QD (DOSE RE-INTRODUCED)
     Route: 041

REACTIONS (1)
  - Hepatic function abnormal [Unknown]

NARRATIVE: CASE EVENT DATE: 20220418
